FAERS Safety Report 5707883-3 (Version None)
Quarter: 2008Q2

REPORT INFORMATION
  Report Type: 
  Country: None (occurrence: None)
  Receive Date: 20080417
  Receipt Date: 20080417
  Transmission Date: 20081010
  Serious: Yes (Life-Threatening, Hospitalization)
  Sender: FDA-Public Use
  Company Number: None

PATIENT
  Age: 63 Year
  Sex: Male
  Weight: 57 kg

DRUGS (5)
  1. HEPARIN [Suspect]
     Indication: RENAL FAILURE CHRONIC
     Dosage: HEMODIALYSIS
     Route: 010
     Dates: start: 20080414, end: 20080414
  2. CARNITOR [Suspect]
     Dosage: HEMODIALYSIS
     Route: 010
  3. ZEMPLAR [Concomitant]
  4. EPOGEN [Concomitant]
  5. VENOFOR [Concomitant]

REACTIONS (2)
  - HEPATIC FAILURE [None]
  - HEPATOCELLULAR INJURY [None]
